FAERS Safety Report 16019323 (Version 1)
Quarter: 2019Q1

REPORT INFORMATION
  Report Type: Spontaneous
  Country: SA (occurrence: SA)
  Receive Date: 20190228
  Receipt Date: 20190228
  Transmission Date: 20190418
  Serious: Yes (Hospitalization)
  Sender: FDA-Public Use
  Company Number: SA-TEVA-2019-SA-1017298

PATIENT
  Age: 29 Year
  Sex: Male

DRUGS (5)
  1. QUETIAPINE. [Suspect]
     Active Substance: QUETIAPINE
     Indication: SUBSTANCE-INDUCED PSYCHOTIC DISORDER
     Dosage: 100 MILLIGRAM DAILY;
     Route: 065
  2. RISPERIDONE. [Suspect]
     Active Substance: RISPERIDONE
     Indication: SUBSTANCE-INDUCED PSYCHOTIC DISORDER
     Dosage: 2 MILLIGRAM DAILY;
     Route: 065
  3. BROMOCRIPTINE [Concomitant]
     Active Substance: BROMOCRIPTINE
     Route: 048
  4. ENOXAPARIN [Suspect]
     Active Substance: ENOXAPARIN
     Dosage: 40 MILLIGRAM DAILY;
     Route: 065
  5. DIAZEPAM. [Concomitant]
     Active Substance: DIAZEPAM
     Dosage: 45 MILLIGRAM DAILY;
     Route: 048

REACTIONS (3)
  - Pulmonary embolism [Unknown]
  - Drug ineffective [Unknown]
  - Neuroleptic malignant syndrome [Recovering/Resolving]
